FAERS Safety Report 23065559 (Version 4)
Quarter: 2023Q4

REPORT INFORMATION
  Report Type: Report from Study
  Country: US (occurrence: US)
  Receive Date: 20231013
  Receipt Date: 20231219
  Transmission Date: 20240109
  Serious: No
  Sender: FDA-Public Use
  Company Number: US-002147023-NVSC2023US221373

PATIENT
  Sex: Male

DRUGS (1)
  1. ENTRESTO [Suspect]
     Active Substance: SACUBITRIL\VALSARTAN
     Indication: Product used for unknown indication
     Dosage: 1 DOSAGE FORM, BID, 49/51MG TAB 1/2 TAB
     Route: 048
     Dates: start: 20231011

REACTIONS (4)
  - Cough [Unknown]
  - Dyspnoea [Unknown]
  - Nasal congestion [Unknown]
  - Wrong technique in product usage process [Unknown]
